FAERS Safety Report 20849268 (Version 1)
Quarter: 2022Q2

REPORT INFORMATION
  Report Type: Spontaneous
  Country: US (occurrence: US)
  Receive Date: 20220519
  Receipt Date: 20220519
  Transmission Date: 20220721
  Serious: No
  Sender: FDA-Public Use
  Company Number: US-BRISTOL-MYERS SQUIBB COMPANY-2022-011630

PATIENT
  Age: 85 Year
  Sex: Male

DRUGS (1)
  1. REVLIMID [Suspect]
     Active Substance: LENALIDOMIDE
     Indication: Product used for unknown indication

REACTIONS (6)
  - Oral pain [Unknown]
  - Asthenia [Unknown]
  - Poor quality sleep [Unknown]
  - Dysstasia [Unknown]
  - Dizziness [Unknown]
  - Taste disorder [Unknown]
